FAERS Safety Report 9303638 (Version 1)
Quarter: 2013Q2

REPORT INFORMATION
  Report Type: Spontaneous
  Country: GB (occurrence: GB)
  Receive Date: 20130522
  Receipt Date: 20130522
  Transmission Date: 20140414
  Serious: Yes (Other)
  Sender: FDA-Public Use
  Company Number: GB-PFIZER INC-2013152534

PATIENT
  Age: 29 Year
  Sex: Female

DRUGS (2)
  1. RIFAMPICIN [Suspect]
     Indication: PROPHYLAXIS
     Dosage: UNK
  2. PROGESTERONE W/ESTROGENS/ [Suspect]
     Indication: CONTRACEPTIVE IMPLANT
     Dosage: UNK

REACTIONS (11)
  - Porphyria acute [Recovered/Resolved]
  - Cerebrovascular accident [Recovering/Resolving]
  - Vasospasm [Recovering/Resolving]
  - Ischaemic stroke [None]
  - Condition aggravated [None]
  - Cerebral artery stenosis [None]
  - Cerebral artery stenosis [None]
  - Cerebral vasoconstriction [None]
  - Hyponatraemia [None]
  - Convulsion [None]
  - Carotid artery stenosis [None]
